FAERS Safety Report 8164127-3 (Version None)
Quarter: 2012Q1

REPORT INFORMATION
  Report Type: 
  Country: None (occurrence: None)
  Receive Date: 20120224
  Receipt Date: 20120216
  Transmission Date: 20120608
  Serious: Yes (Other)
  Sender: FDA-Public Use
  Company Number: US-ABBOTT-12P-163-0905779-00

PATIENT
  Sex: Female
  Weight: 73.094 kg

DRUGS (8)
  1. DEPAKOTE [Suspect]
     Indication: PETIT MAL EPILEPSY
     Route: 048
     Dates: start: 20120215, end: 20120215
  2. LEVOXYL [Concomitant]
     Indication: HYPOTHYROIDISM
  3. DEPAKOTE [Interacting]
     Route: 048
  4. LISINOPRIL [Concomitant]
     Indication: BLOOD PRESSURE
  5. PRAVASTATIN [Concomitant]
     Indication: BLOOD CHOLESTEROL
  6. IMITRAMINE [Concomitant]
     Indication: ANXIETY
  7. HYDROCHLOROTHIAZIDE [Interacting]
     Indication: HYPERTENSION
     Dates: start: 20120201, end: 20120214
  8. DILTIAZEM HCL [Concomitant]
     Indication: BLOOD PRESSURE

REACTIONS (5)
  - PHOTOPHOBIA [None]
  - DIZZINESS [None]
  - HYPERTENSION [None]
  - PETIT MAL EPILEPSY [None]
  - DRUG INTERACTION [None]
